FAERS Safety Report 25156936 (Version 1)
Quarter: 2025Q2

REPORT INFORMATION
  Report Type: Other
  Country: CA (occurrence: CA)
  Receive Date: 20250403
  Receipt Date: 20250403
  Transmission Date: 20250717
  Serious: Yes (Other)
  Sender: APOTEX
  Company Number: CA-APOTEX-2025AP003911

PATIENT
  Age: 47 Year
  Sex: Female

DRUGS (2)
  1. AMBRISENTAN [Suspect]
     Active Substance: AMBRISENTAN
     Indication: Pulmonary arterial hypertension
     Dosage: 10 MILLIGRAM, QD
     Route: 048
  2. CHLORHEXIDINE [Suspect]
     Active Substance: CHLORHEXIDINE
     Indication: Vascular device infection
     Route: 065

REACTIONS (14)
  - Bronchitis [Not Recovered/Not Resolved]
  - COVID-19 [Not Recovered/Not Resolved]
  - Central venous catheterisation [Not Recovered/Not Resolved]
  - Cystitis [Not Recovered/Not Resolved]
  - Eye infection [Not Recovered/Not Resolved]
  - Limb injury [Not Recovered/Not Resolved]
  - Pain [Not Recovered/Not Resolved]
  - Pneumonia [Not Recovered/Not Resolved]
  - Respiratory tract congestion [Not Recovered/Not Resolved]
  - Road traffic accident [Not Recovered/Not Resolved]
  - Skin reaction [Not Recovered/Not Resolved]
  - Vascular device infection [Not Recovered/Not Resolved]
  - Nasal congestion [Not Recovered/Not Resolved]
  - Hypersensitivity [Not Recovered/Not Resolved]
